FAERS Safety Report 10152575 (Version 1)
Quarter: 2014Q2

REPORT INFORMATION
  Report Type: Spontaneous
  Country: US (occurrence: US)
  Receive Date: 20140505
  Receipt Date: 20140505
  Transmission Date: 20141212
  Serious: No
  Sender: FDA-Public Use
  Company Number: US-ASTRAZENECA-2014SE19228

PATIENT
  Age: 21 Year
  Sex: Female

DRUGS (6)
  1. OMEPRAZOLE [Suspect]
     Indication: PANCREATITIS ACUTE
  2. METFORMIN [Suspect]
     Indication: PANCREATITIS ACUTE
  3. FENOFIBRATE [Suspect]
     Indication: PANCREATITIS ACUTE
  4. NIACIN [Suspect]
     Indication: PANCREATITIS ACUTE
  5. OMEGA-3 [Suspect]
     Indication: PANCREATITIS ACUTE
  6. INSULIN [Suspect]
     Indication: PANCREATITIS ACUTE

REACTIONS (2)
  - Exposure during pregnancy [Recovered/Resolved]
  - Premature delivery [Recovered/Resolved]
